FAERS Safety Report 5832882-0 (Version None)
Quarter: 2008Q3

REPORT INFORMATION
  Report Type: 
  Country: None (occurrence: None)
  Receive Date: 20080730
  Receipt Date: 20080714
  Transmission Date: 20090109
  Serious: Yes (Hospitalization)
  Sender: FDA-Public Use
  Company Number: APP200800675

PATIENT
  Age: 67 Year
  Sex: Male
  Weight: 79.5 kg

DRUGS (17)
  1. DEXAMETHASONE SODIUM PHOSPHATE [Suspect]
     Indication: BRAIN OEDEMA
  2. SUNITINIB MALATE (SUNITINIB MALATE) [Suspect]
     Indication: RENAL CELL CARCINOMA
     Dosage: 25 MG, 1 IN 1 D, ORAL
     Route: 048
     Dates: start: 20040912
  3. ZANTAC [Concomitant]
  4. NORVASC [Concomitant]
  5. TYLENOL PM (DOZOL /00435101/) [Concomitant]
  6. PANTOPRAZOLE SODIUM [Concomitant]
  7. MYLANTA (MYLANTA /00036701/) [Concomitant]
  8. HYDROCORTISONE [Concomitant]
  9. LOPERAMIDE HYDROCHLORIDE [Concomitant]
  10. SYNTHROID [Concomitant]
  11. BETADERM (BETAMETHASONE) [Concomitant]
  12. HYDROCORTISONE [Concomitant]
  13. FLORINEF [Concomitant]
  14. ATACAND HCT [Concomitant]
  15. COLACE (DOCUSATE SODIUM) [Concomitant]
  16. MULTIVITAMIN [Concomitant]
  17. MAALOX (ALUDROX /00082501/) [Concomitant]

REACTIONS (2)
  - DEHYDRATION [None]
  - HYPERGLYCAEMIA [None]
